FAERS Safety Report 24217503 (Version 4)
Quarter: 2024Q3

REPORT INFORMATION
  Report Type: Report from Study
  Country: US (occurrence: US)
  Receive Date: 20240816
  Receipt Date: 20240918
  Transmission Date: 20241016
  Serious: No
  Sender: ALEXION PHARMACEUTICALS
  Company Number: US-AstraZeneca-CH-00680056A

PATIENT
  Sex: Female

DRUGS (1)
  1. STRENSIQ [Suspect]
     Active Substance: ASFOTASE ALFA
     Indication: Hypophosphatasia
     Dosage: UNK
     Route: 065

REACTIONS (5)
  - Hordeolum [Recovered/Resolved]
  - Swelling of eyelid [Not Recovered/Not Resolved]
  - Dacryostenosis acquired [Recovered/Resolved]
  - Sleep disorder [Unknown]
  - Insomnia [Unknown]
